FAERS Safety Report 24188922 (Version 1)
Quarter: 2024Q3

REPORT INFORMATION
  Report Type: Spontaneous
  Country: US (occurrence: US)
  Receive Date: 20240808
  Receipt Date: 20240808
  Transmission Date: 20241016
  Serious: Yes (Other)
  Sender: OTSUKA
  Company Number: US-OTSUKA-2024_015050

PATIENT
  Age: 84 Year
  Sex: Male
  Weight: 77.56 kg

DRUGS (2)
  1. ARIPIPRAZOLE [Suspect]
     Active Substance: ARIPIPRAZOLE
     Indication: Depression
     Dosage: 2 MG, QD (AT BEDTIME)
     Route: 065
     Dates: start: 20240515
  2. SERTRALINE [Concomitant]
     Active Substance: SERTRALINE HYDROCHLORIDE
     Indication: Arthritis
     Dosage: UNK
     Route: 065

REACTIONS (3)
  - Fall [Not Recovered/Not Resolved]
  - Amnesia [Unknown]
  - Muscular weakness [Unknown]

NARRATIVE: CASE EVENT DATE: 20240501
